FAERS Safety Report 19392170 (Version 1)
Quarter: 2021Q2

REPORT INFORMATION
  Report Type: Spontaneous
  Country: CN (occurrence: CN)
  Receive Date: 20210608
  Receipt Date: 20210608
  Transmission Date: 20210717
  Serious: Yes (Other)
  Sender: FDA-Public Use
  Company Number: CN-PFIZER INC-2021623334

PATIENT
  Age: 26 Year
  Sex: Male
  Weight: 59 kg

DRUGS (2)
  1. CYTOSAR [Suspect]
     Active Substance: CYTARABINE
     Indication: LYMPHOMA
     Dosage: 3.000 G, 2X/DAY (VIA PUMP INJECTION)
     Dates: start: 20210514, end: 20210516
  2. CYTOSAR [Suspect]
     Active Substance: CYTARABINE
     Indication: LEUKAEMIA

REACTIONS (1)
  - Drug-induced liver injury [Recovering/Resolving]

NARRATIVE: CASE EVENT DATE: 20210515
